FAERS Safety Report 4747648-2 (Version None)
Quarter: 2005Q3

REPORT INFORMATION
  Report Type: 
  Country: None (occurrence: None)
  Receive Date: 20050818
  Receipt Date: 20050415
  Transmission Date: 20060218
  Serious: Yes (Other)
  Sender: FDA-Public Use
  Company Number: US-BRISTOL-MYERS SQUIBB COMPANY-12934006

PATIENT
  Age: 61 Year
  Sex: Female

DRUGS (1)
  1. TEQUIN [Suspect]
     Indication: URINARY TRACT INFECTION
     Dates: start: 20050415

REACTIONS (5)
  - COLD SWEAT [None]
  - DIZZINESS [None]
  - FEELING COLD [None]
  - HYPERHIDROSIS [None]
  - NAUSEA [None]
